FAERS Safety Report 7302228-X (Version None)
Quarter: 2011Q1

REPORT INFORMATION
  Report Type: 
  Country: None (occurrence: None)
  Receive Date: 20110218
  Receipt Date: 20110216
  Transmission Date: 20110831
  Serious: Yes (Death)
  Sender: FDA-Public Use
  Company Number: PHFR2011GB01359

PATIENT
  Sex: Male

DRUGS (2)
  1. AFINITOR [Suspect]
     Route: 065
  2. SUTENT [Concomitant]

REACTIONS (2)
  - DEATH [None]
  - HEADACHE [None]
